FAERS Safety Report 6661852-8 (Version None)
Quarter: 2010Q1

REPORT INFORMATION
  Report Type: 
  Country: None (occurrence: None)
  Receive Date: 20100331
  Receipt Date: 20090811
  Transmission Date: 20100710
  Serious: No
  Sender: FDA-Public Use
  Company Number: US-BRISTOL-MYERS SQUIBB COMPANY-14737639

PATIENT
  Age: 59 Year
  Sex: Female
  Weight: 89 kg

DRUGS (2)
  1. ERBITUX [Suspect]
     Indication: CERVIX CARCINOMA
     Dosage: 4TH INFUSION
  2. BENADRYL [Concomitant]
     Indication: PREMEDICATION

REACTIONS (2)
  - GINGIVAL ERYTHEMA [None]
  - GINGIVAL SWELLING [None]
